FAERS Safety Report 4951248-9 (Version None)
Quarter: 2006Q2

REPORT INFORMATION
  Report Type: 
  Country: None (occurrence: None)
  Receive Date: 20060317
  Receipt Date: 20060314
  Transmission Date: 20061013
  Serious: Yes (Hospitalization)
  Sender: FDA-Public Use
  Company Number: 20060004USST

PATIENT
  Age: 56 Year
  Sex: Female

DRUGS (16)
  1. NATULAN (PROCARBAZINE HYDROCHLORIDE) CAPSULES [Suspect]
     Indication: HODGKIN'S DISEASE
     Dosage: 4 DF, PO
     Route: 048
     Dates: start: 20051003, end: 20051008
  2. NATULAN (PROCARBAZINE HYDROCHLORIDE) CAPSULES [Suspect]
     Indication: HODGKIN'S DISEASE
     Dosage: 4 DF, PO
     Route: 048
     Dates: start: 20051017, end: 20051023
  3. ATARAX [Suspect]
     Dosage: 50 MG PO
     Route: 048
     Dates: start: 20051009, end: 20051013
  4. ATARAX [Suspect]
     Dosage: 50 MG PO
     Route: 048
     Dates: start: 20051024, end: 20051026
  5. ATARAX [Suspect]
     Dosage: 50 MG PO
     Route: 048
     Dates: start: 20051028, end: 20051031
  6. ONCOVIN [Suspect]
     Indication: HODGKIN'S DISEASE
     Dosage: IV
     Route: 042
     Dates: start: 20051003, end: 20051004
  7. ONCOVIN [Suspect]
     Indication: HODGKIN'S DISEASE
     Dosage: IV
     Route: 042
     Dates: start: 20051017, end: 20051018
  8. CIFLOX (CIPROFLOXACIN) [Suspect]
     Indication: HODGKIN'S DISEASE
     Dosage: 400 MG, IV
     Route: 042
     Dates: start: 20051009, end: 20051011
  9. ACETAMINOPHEN [Suspect]
     Dosage: 1G TID, IV
     Route: 042
     Dates: start: 20051009, end: 20051012
  10. ACETAMINOPHEN [Suspect]
     Dosage: 1G TID, IV
     Route: 042
     Dates: start: 20051017, end: 20051020
  11. ACETAMINOPHEN [Suspect]
     Dosage: 1G TID, IV
     Route: 042
     Dates: start: 20051102, end: 20051103
  12. OMEPRAZOLE [Suspect]
     Dosage: 1 DF, IV
     Route: 042
     Dates: start: 20051009, end: 20051102
  13. LEVOFLOXACTIN [Concomitant]
  14. AUGMENTIN '125' [Concomitant]
  15. FUROSEMIDE [Concomitant]
  16. POTASSIUM CHLORIDE [Concomitant]

REACTIONS (9)
  - ALVEOLITIS ALLERGIC [None]
  - DRUG EFFECT DECREASED [None]
  - INFLAMMATION [None]
  - INTERSTITIAL LUNG DISEASE [None]
  - LEUKOPENIA [None]
  - NORMOCHROMIC NORMOCYTIC ANAEMIA [None]
  - RENAL FAILURE [None]
  - THROMBOCYTOPENIA [None]
  - TOXIC SKIN ERUPTION [None]
